FAERS Safety Report 5010102-7 (Version None)
Quarter: 2006Q2

REPORT INFORMATION
  Report Type: 
  Country: None (occurrence: None)
  Receive Date: 20060404
  Receipt Date: 20051128
  Transmission Date: 20061013
  Serious: No
  Sender: FDA-Public Use
  Company Number: US200511001703

PATIENT
  Age: 36 Year
  Sex: Female

DRUGS (2)
  1. CYMBALTA [Suspect]
     Dosage: 180 MG
     Dates: end: 20051101
  2. LAMICTAL [Concomitant]

REACTIONS (4)
  - AGITATION [None]
  - NAUSEA [None]
  - PRESCRIBED OVERDOSE [None]
  - THINKING ABNORMAL [None]
